FAERS Safety Report 9202704 (Version 2)
Quarter: 2013Q4

REPORT INFORMATION
  Report Type: Spontaneous
  Country: US (occurrence: US)
  Receive Date: 20130401
  Receipt Date: 20131101
  Transmission Date: 20140711
  Serious: Yes (Other)
  Sender: FDA-Public Use
  Company Number: US-BAYER-2013-039243

PATIENT
  Age: 19 Year
  Sex: Female
  Weight: 83.9 kg

DRUGS (6)
  1. YASMIN [Suspect]
  2. YAZ [Suspect]
  3. TOPIRAMATE [Concomitant]
     Dosage: UNK
     Route: 048
  4. MAXALT [Concomitant]
     Dosage: UNK
  5. AMPHETAMINE SALTS [Concomitant]
     Dosage: UNK
  6. TOPAMAX [Concomitant]
     Dosage: 75 MG, QD
     Route: 048

REACTIONS (7)
  - Cholecystectomy [None]
  - Biliary dyskinesia [None]
  - Injury [None]
  - Pain [None]
  - Anxiety [None]
  - Deformity [None]
  - General physical health deterioration [None]
